FAERS Safety Report 8847478 (Version 1)
Quarter: 2012Q4

REPORT INFORMATION
  Report Type: 
  Country: US (occurrence: US)
  Receive Date: 20121018
  Receipt Date: 20121018
  Transmission Date: 20130627
  Serious: Yes (Hospitalization)
  Sender: FDA-Public Use
  Company Number: US-B.I. PHARMACEUTICALS,INC./RIDGEFIELD-2012-BP-25403BP

PATIENT
  Age: 81 None
  Sex: Female
  Weight: 71 kg

DRUGS (11)
  1. SPIRIVA [Suspect]
     Dosage: 18 mcg
     Route: 055
     Dates: start: 2011
  2. SPIRIVA [Suspect]
     Dosage: 18 mcg
     Route: 048
     Dates: start: 20121011, end: 20121011
  3. ALBUTEROL [Concomitant]
     Route: 055
  4. SYMBICORT [Concomitant]
     Route: 055
  5. PLAVIX [Concomitant]
     Dosage: 75 mg
     Route: 048
  6. COREG [Concomitant]
     Indication: CARDIAC DISORDER
     Dosage: 50 mg
     Route: 048
  7. LOSARTAN [Concomitant]
     Indication: HYPERTENSION
     Dosage: 50 mg
     Route: 048
  8. ZOCOR [Concomitant]
     Indication: BLOOD CHOLESTEROL INCREASED
     Dosage: 40 mg
     Route: 048
  9. LEXAPRO [Concomitant]
     Indication: SLEEP DISORDER
     Route: 048
  10. SYNTHROID [Concomitant]
     Dosage: 100 mcg
     Route: 048
  11. LANTUS INSULIN [Concomitant]
     Indication: DIABETES MELLITUS
     Dosage: 23 U
     Route: 058

REACTIONS (3)
  - Pneumonia [Recovered/Resolved]
  - Pneumonia [Recovered/Resolved]
  - Product quality issue [Recovered/Resolved]
